FAERS Safety Report 13837647 (Version 1)
Quarter: 2017Q3

REPORT INFORMATION
  Report Type: Spontaneous
  Country: GB (occurrence: GB)
  Receive Date: 20170806
  Receipt Date: 20170806
  Transmission Date: 20171127
  Serious: Yes (Death)
  Sender: FDA-Public Use
  Company Number: GB-DEXPHARM-20171104

PATIENT
  Age: 46 Year
  Sex: Male

DRUGS (6)
  1. METHADONE [Suspect]
     Active Substance: METHADONE HYDROCHLORIDE
  2. MINOCYCLINE [Suspect]
     Active Substance: MINOCYCLINE\MINOCYCLINE HYDROCHLORIDE
  3. OMEPRAZOLE. [Suspect]
     Active Substance: OMEPRAZOLE
  4. AMITRIPTYLINE [Suspect]
     Active Substance: AMITRIPTYLINE
  5. HYDROXYZINE [Suspect]
     Active Substance: HYDROXYZINE HYDROCHLORIDE
  6. GABAPENTIN. [Suspect]
     Active Substance: GABAPENTIN

REACTIONS (3)
  - Cyanosis [Unknown]
  - Myocardial ischaemia [Fatal]
  - Feeling cold [Unknown]
